FAERS Safety Report 5627733-3 (Version None)
Quarter: 2008Q1

REPORT INFORMATION
  Report Type: 
  Country: None (occurrence: None)
  Receive Date: 20080215
  Receipt Date: 20080208
  Transmission Date: 20080703
  Serious: Yes (Other)
  Sender: FDA-Public Use
  Company Number: US-AVENTIS-200716956US

PATIENT
  Age: 81 Year
  Sex: Male

DRUGS (12)
  1. LASIX [Suspect]
     Dates: end: 20070901
  2. COREG [Suspect]
     Dosage: DOSE: 25 IN AM/12.5 IN PM
  3. COREG [Suspect]
     Dosage: DOSE: UNSPECIFIED DOSE
  4. HYDROCHLOROTHIAZIDE [Suspect]
     Dosage: DOSE: UNK
     Route: 048
  5. DEMADEX [Suspect]
     Dosage: DOSE: UNK
     Route: 048
  6. ZOCOR [Concomitant]
     Dosage: DOSE: UNK
  7. ASPIRIN [Concomitant]
     Dosage: DOSE: UNK
  8. COUMADIN [Concomitant]
     Dosage: DOSE: UNK
  9. LISINOPRIL [Concomitant]
     Dosage: DOSE: UNK
  10. ALDACTONE [Concomitant]
     Dosage: DOSE: UNK
     Dates: end: 20070901
  11. POTASSIUM CHLORIDE [Concomitant]
     Dosage: DOSE: UNK
     Dates: end: 20070901
  12. VITAMINS NOS [Concomitant]
     Dosage: DOSE: UNK
     Dates: end: 20070901

REACTIONS (11)
  - DIZZINESS [None]
  - DRUG INTERACTION [None]
  - FATIGUE [None]
  - HEADACHE [None]
  - HYPOTENSION [None]
  - INTERNATIONAL NORMALISED RATIO INCREASED [None]
  - MYALGIA [None]
  - SOMNOLENCE [None]
  - THIRST [None]
  - VENTRICULAR FIBRILLATION [None]
  - VISUAL DISTURBANCE [None]
